FAERS Safety Report 4589145-3 (Version None)
Quarter: 2005Q1

REPORT INFORMATION
  Report Type: 
  Country: None (occurrence: None)
  Receive Date: 20050215
  Receipt Date: 20050215
  Transmission Date: 20050727
  Serious: Yes (Hospitalization)
  Sender: FDA-Public Use
  Company Number: None

PATIENT
  Sex: Male
  Weight: 85.2762 kg

DRUGS (5)
  1. WARFARIN SODIUM [Suspect]
     Dosage: 5MG  DAILY ORAL
     Route: 048
     Dates: start: 20030201, end: 20050202
  2. ASPIRIN [Concomitant]
  3. GLUCOPHAGE [Concomitant]
  4. GLYBURIDE [Concomitant]
  5. COZAAR [Concomitant]

REACTIONS (4)
  - DYSPNOEA [None]
  - FAECES DISCOLOURED [None]
  - FATIGUE [None]
  - MELAENA [None]
